FAERS Safety Report 9157284 (Version 1)
Quarter: 2013Q1

REPORT INFORMATION
  Report Type: Spontaneous
  Country: US (occurrence: US)
  Receive Date: 20130312
  Receipt Date: 20130312
  Transmission Date: 20140127
  Serious: No
  Sender: FDA-Public Use
  Company Number: US-PFIZER INC-2013080971

PATIENT
  Sex: Male

DRUGS (2)
  1. ADVIL PM [Suspect]
     Indication: MYALGIA
     Dosage: TWO CAPLETS, AS NEEDED
     Route: 048
     Dates: start: 20130305
  2. ADVIL PM [Suspect]
     Indication: SOMNOLENCE

REACTIONS (1)
  - Drug effect delayed [Unknown]
